FAERS Safety Report 4578386-7 (Version None)
Quarter: 2005Q1

REPORT INFORMATION
  Report Type: 
  Country: None (occurrence: None)
  Receive Date: 20050211
  Receipt Date: 20050112
  Transmission Date: 20050727
  Serious: Yes (Other)
  Sender: FDA-Public Use
  Company Number: FR-BRISTOL-MYERS SQUIBB COMPANY-12828612

PATIENT
  Age: 53 Year
  Sex: Female

DRUGS (4)
  1. DAIVONEX OINTMENT [Suspect]
     Indication: BURNING SENSATION
     Route: 061
     Dates: start: 20050101, end: 20050101
  2. ULTRAVIOLET THERAPY [Suspect]
     Indication: PSORIASIS
     Dates: start: 20040101, end: 20050107
  3. VASELINE [Concomitant]
     Dates: start: 20040101, end: 20050107
  4. BIAFINE [Concomitant]
     Dates: start: 20040101, end: 20050107

REACTIONS (4)
  - APPLICATION SITE IRRITATION [None]
  - ERYTHEMA [None]
  - MENTAL DISORDER [None]
  - TREATMENT NONCOMPLIANCE [None]
